FAERS Safety Report 10157280 (Version 2)
Quarter: 2014Q2

REPORT INFORMATION
  Report Type: Spontaneous
  Country: IN (occurrence: IN)
  Receive Date: 20140507
  Receipt Date: 20140511
  Transmission Date: 20141212
  Serious: Yes (Life-Threatening)
  Sender: FDA-Public Use
  Company Number: IN-009507513-1405IND001902

PATIENT
  Sex: Male

DRUGS (2)
  1. JANUVIA [Suspect]
     Indication: DIABETES MELLITUS
     Dosage: 100 MG, QD
     Route: 048
  2. INSULIN [Concomitant]
     Dosage: 16 UNITS BEFORE BREAKFAST AND 8 UNITS BEFORE DINNER

REACTIONS (1)
  - Hypoglycaemia [Not Recovered/Not Resolved]
